FAERS Safety Report 23798312 (Version 1)
Quarter: 2024Q2

REPORT INFORMATION
  Report Type: Other
  Country: US (occurrence: US)
  Receive Date: 20240430
  Receipt Date: 20240430
  Transmission Date: 20240716
  Serious: Yes (Other)
  Sender: FDA-Public Use
  Company Number: US-B.Braun Medical Inc.-2156276

PATIENT
  Age: 63 Year
  Sex: Male

DRUGS (3)
  1. CALCIUM GLUCONATE [Suspect]
     Active Substance: CALCIUM GLUCONATE
     Indication: Cardiomyopathy
  2. INSULIN NOS [Suspect]
     Active Substance: INSULIN NOS
  3. NITRIC OXIDE [Concomitant]
     Active Substance: NITRIC OXIDE

REACTIONS (3)
  - Hypervolaemia [Recovered/Resolved]
  - Off label use [Recovered/Resolved]
  - Hypoglycaemia [Recovered/Resolved]
